FAERS Safety Report 10183865 (Version 2)
Quarter: 2014Q2

REPORT INFORMATION
  Report Type: Spontaneous
  Country: US (occurrence: US)
  Receive Date: 20140520
  Receipt Date: 20140609
  Transmission Date: 20141212
  Serious: No
  Sender: FDA-Public Use
  Company Number: US-009507513-1405USA008248

PATIENT
  Age: 53 Year
  Sex: Female
  Weight: 99.77 kg

DRUGS (2)
  1. OXYTROL FOR WOMEN [Suspect]
     Indication: NOCTURIA
     Dosage: 1 DF, UNKNOWN
     Route: 062
     Dates: start: 201401, end: 201402
  2. OXYTROL FOR WOMEN [Suspect]
     Indication: POLLAKIURIA

REACTIONS (4)
  - Back pain [Unknown]
  - Pruritus [Recovered/Resolved]
  - Drug effect decreased [Unknown]
  - Product quality issue [Unknown]
